FAERS Safety Report 5701392-3 (Version None)
Quarter: 2008Q2

REPORT INFORMATION
  Report Type: 
  Country: None (occurrence: None)
  Receive Date: 20080410
  Receipt Date: 20080402
  Transmission Date: 20081010
  Serious: Yes (Hospitalization)
  Sender: FDA-Public Use
  Company Number: US-BAXTER-2008BH002286

PATIENT
  Age: 52 Year
  Sex: Female
  Weight: 138 kg

DRUGS (1)
  1. HEPARIN SODIUM [Suspect]
     Indication: PROPHYLAXIS
     Dosage: DOSE UNIT:UNKNOWN
     Route: 033
     Dates: end: 20080301

REACTIONS (5)
  - BLOOD POTASSIUM DECREASED [None]
  - FLUID OVERLOAD [None]
  - HYPOTENSION [None]
  - PERITONITIS [None]
  - SEPSIS [None]
